FAERS Safety Report 13302016 (Version 2)
Quarter: 2017Q1

REPORT INFORMATION
  Report Type: Spontaneous
  Country: JP (occurrence: JP)
  Receive Date: 20170307
  Receipt Date: 20170315
  Transmission Date: 20170428
  Serious: Yes (Other)
  Sender: FDA-Public Use
  Company Number: JP-PFIZER INC-2017091014

PATIENT
  Age: 39 Year
  Sex: Female

DRUGS (15)
  1. CANDESARTAN [Concomitant]
     Active Substance: CANDESARTAN
  2. WARFARIN [Concomitant]
     Active Substance: WARFARIN
  3. CALONAL [Concomitant]
     Active Substance: ACETAMINOPHEN
  4. FEBURIC [Concomitant]
     Active Substance: FEBUXOSTAT
  5. ZOLPIDEM [Concomitant]
     Active Substance: ZOLPIDEM\ZOLPIDEM TARTRATE
  6. AZOSEMIDE [Concomitant]
     Active Substance: AZOSEMIDE
  7. SPIRONOLACTONE. [Concomitant]
     Active Substance: SPIRONOLACTONE
  8. FERROUS CITRATE [Concomitant]
     Active Substance: FERROUS CITRATE
  9. REVATIO [Suspect]
     Active Substance: SILDENAFIL CITRATE
     Indication: PULMONARY HYPERTENSION
     Dosage: 60 (NO UNITS PROVIDED), UNK
     Route: 048
  10. BAYASPIRIN [Concomitant]
     Active Substance: ASPIRIN
  11. THYRADIN S [Concomitant]
     Active Substance: LEVOTHYROXINE SODIUM
  12. REBAMIPIDE [Concomitant]
     Active Substance: REBAMIPIDE
  13. BIO-THREE [Concomitant]
     Active Substance: HERBALS
  14. SAMSCA [Concomitant]
     Active Substance: TOLVAPTAN
  15. LANSOPRAZOLE. [Concomitant]
     Active Substance: LANSOPRAZOLE

REACTIONS (3)
  - Vision blurred [Unknown]
  - Vitreous floaters [Not Recovered/Not Resolved]
  - Deafness [Unknown]
